FAERS Safety Report 9949427 (Version 4)
Quarter: 2014Q2

REPORT INFORMATION
  Report Type: Spontaneous
  Country: US (occurrence: US)
  Receive Date: 20140304
  Receipt Date: 20140429
  Transmission Date: 20141212
  Serious: Yes (Other)
  Sender: FDA-Public Use
  Company Number: US-ROCHE-1358505

PATIENT
  Age: 84 Year
  Sex: Female

DRUGS (5)
  1. LUCENTIS [Suspect]
     Indication: AGE-RELATED MACULAR DEGENERATION
     Dosage: -JAN-2014?RIGHT EYE
     Route: 050
     Dates: start: 201306
  2. AVASTIN [Suspect]
     Indication: AGE-RELATED MACULAR DEGENERATION
     Dosage: RIGHT EYE
     Route: 050
     Dates: start: 201306
  3. HYDROXYUREA [Concomitant]
     Indication: PLATELET COUNT INCREASED
     Route: 065
  4. AZOR (UNITED STATES) [Concomitant]
     Indication: HYPERTENSION
     Route: 065
  5. SYSTANE [Concomitant]
     Dosage: 3 X 6 DAYS IN BOTH EYES
     Route: 065
     Dates: start: 20140317

REACTIONS (12)
  - Eye discharge [Recovered/Resolved]
  - Ocular hyperaemia [Not Recovered/Not Resolved]
  - Eye discharge [Not Recovered/Not Resolved]
  - Eye infection [Not Recovered/Not Resolved]
  - Eye pain [Not Recovered/Not Resolved]
  - Eye swelling [Not Recovered/Not Resolved]
  - Visual acuity reduced [Not Recovered/Not Resolved]
  - Photosensitivity reaction [Recovered/Resolved]
  - Halo vision [Recovered/Resolved]
  - Vision blurred [Recovered/Resolved]
  - Drug ineffective [Unknown]
  - Visual impairment [Recovered/Resolved]
